FAERS Safety Report 6718650-6 (Version None)
Quarter: 2010Q2

REPORT INFORMATION
  Report Type: 
  Country: None (occurrence: None)
  Receive Date: 20100510
  Receipt Date: 20100428
  Transmission Date: 20101027
  Serious: Yes (Hospitalization, Other)
  Sender: FDA-Public Use
  Company Number: JP-AMGEN-US404580

PATIENT
  Sex: Female
  Weight: 50 kg

DRUGS (2)
  1. ENBREL [Suspect]
     Indication: RHEUMATOID ARTHRITIS
     Route: 058
     Dates: start: 20100122, end: 20100323
  2. PREDNISOLONE [Concomitant]
     Route: 048

REACTIONS (4)
  - DRUG ERUPTION [None]
  - LIVER DISORDER [None]
  - ORAL MUCOSA EROSION [None]
  - PYREXIA [None]
